FAERS Safety Report 10133274 (Version 2)
Quarter: 2014Q2

REPORT INFORMATION
  Report Type: Spontaneous
  Country: BR (occurrence: BR)
  Receive Date: 20140428
  Receipt Date: 20140627
  Transmission Date: 20141212
  Serious: Yes (Death)
  Sender: FDA-Public Use
  Company Number: BR-B.I. PHARMACEUTICALS,INC./RIDGEFIELD-2014-BI-18808BR

PATIENT
  Age: 77 Year
  Sex: Male
  Weight: 65 kg

DRUGS (6)
  1. SPIRIVA RESPIMAT [Suspect]
     Indication: PNEUMONIA
     Route: 055
     Dates: start: 201402, end: 201403
  2. SPIRIVA RESPIMAT [Suspect]
     Indication: DYSPNOEA
  3. SPIRIVA RESPIMAT [Suspect]
     Indication: EMPHYSEMA
  4. SPIRIVA RESPIMAT [Suspect]
     Indication: LUNG NEOPLASM MALIGNANT
  5. PRESSAT [Concomitant]
     Indication: HYPERTENSION
     Route: 065
  6. OTHERS MEDICATIONS [Concomitant]
     Route: 065

REACTIONS (3)
  - Lung neoplasm malignant [Fatal]
  - Renal disorder [Fatal]
  - Bronchopulmonary disease [Fatal]
